FAERS Safety Report 9581018 (Version 1)
Quarter: 2013Q3

REPORT INFORMATION
  Report Type: Spontaneous
  Country: US (occurrence: None)
  Receive Date: 20130916
  Receipt Date: 20130916
  Transmission Date: 20140515
  Serious: Yes (Other)
  Sender: FDA-Public Use
  Company Number: JPI-P-026796

PATIENT
  Age: 54 Year
  Sex: Male

DRUGS (5)
  1. XYREM [Suspect]
     Indication: CATAPLEXY
     Dosage: 4.5GM (2.25GM, 2 IN 1D) ORAL
     Route: 048
     Dates: start: 20120322
  2. METHADONE HYDROCHLORIDE [Concomitant]
  3. AMITRIPTYLINE [Concomitant]
  4. SIMVASTATIN [Concomitant]
  5. ALENDRONATE SODIUM [Concomitant]

REACTIONS (4)
  - Fall [None]
  - Condition aggravated [None]
  - Dizziness [None]
  - Cataplexy [None]
